FAERS Safety Report 6384896-2 (Version None)
Quarter: 2009Q4

REPORT INFORMATION
  Report Type: 
  Country: None (occurrence: None)
  Receive Date: 20091002
  Receipt Date: 20090928
  Transmission Date: 20100525
  Serious: Yes (Disabling, Other)
  Sender: FDA-Public Use
  Company Number: US-BAYER-200934421NA

PATIENT
  Sex: Male

DRUGS (1)
  1. AVELOX [Suspect]
     Indication: BACTERIAL INFECTION
     Dates: start: 20040101

REACTIONS (4)
  - ADVERSE DRUG REACTION [None]
  - PAIN [None]
  - TENDON RUPTURE [None]
  - TENDONITIS [None]
